FAERS Safety Report 9648801 (Version 4)
Quarter: 2014Q2

REPORT INFORMATION
  Report Type: Report from Study
  Country: JP (occurrence: JP)
  Receive Date: 20131028
  Receipt Date: 20140401
  Transmission Date: 20141212
  Serious: Yes (Other)
  Sender: FDA-Public Use
  Company Number: JP-BAYER-2013-130064

PATIENT
  Age: 86 Year
  Sex: Female
  Weight: 37 kg

DRUGS (8)
  1. STIVARGA [Suspect]
     Indication: GASTROINTESTINAL STROMAL TUMOUR
     Dosage: 120 MG, QD
     Route: 048
     Dates: start: 20130918, end: 20131008
  2. STIVARGA [Suspect]
     Indication: GASTROINTESTINAL STROMAL TUMOUR
     Dosage: 120 MG, QD
     Route: 048
     Dates: start: 20131031, end: 20131119
  3. STIVARGA [Suspect]
     Indication: GASTROINTESTINAL STROMAL TUMOUR
     Dosage: 120 MG, QD
     Route: 048
     Dates: start: 20131220, end: 20131226
  4. LOXOPROFEN [Concomitant]
     Indication: GASTROINTESTINAL STROMAL TUMOUR
     Dosage: UNK
     Route: 048
     Dates: start: 20131009
  5. LASIX [Concomitant]
     Indication: WEIGHT INCREASED
     Dosage: DAILY DOSE 20 MG
     Route: 048
     Dates: start: 20131028
  6. ALDACTONE A [Concomitant]
     Indication: CARDIOVASCULAR EVENT PROPHYLAXIS
     Dosage: DAILY DOSE 50 MG
     Route: 048
     Dates: start: 20131028
  7. NEXIUM [Concomitant]
     Dosage: DAILY DOSE 20 MG
     Route: 048
     Dates: start: 20131220
  8. ANTEBATE [Concomitant]
     Indication: PROPHYLAXIS
     Dosage: UNK
     Route: 061
     Dates: start: 20131220

REACTIONS (5)
  - Cholecystitis [Recovering/Resolving]
  - Weight increased [Recovered/Resolved]
  - Hypertension [Recovering/Resolving]
  - Palmar-plantar erythrodysaesthesia syndrome [Not Recovered/Not Resolved]
  - Generalised erythema [Recovered/Resolved]
